FAERS Safety Report 18028037 (Version 2)
Quarter: 2021Q2

REPORT INFORMATION
  Report Type: Spontaneous
  Country: US (occurrence: US)
  Receive Date: 20200715
  Receipt Date: 20210629
  Transmission Date: 20210717
  Serious: No
  Sender: FDA-Public Use
  Company Number: US-TEVA-2020-US-1800210

PATIENT
  Age: 53 Year
  Sex: Male

DRUGS (1)
  1. TESTOSTERONE. [Suspect]
     Active Substance: TESTOSTERONE
     Route: 061

REACTIONS (5)
  - Stress [Unknown]
  - Therapy interrupted [Unknown]
  - Fatigue [Unknown]
  - Inability to afford medication [Unknown]
  - Therapeutic response unexpected [Unknown]
